FAERS Safety Report 23797102 (Version 1)
Quarter: 2024Q2

REPORT INFORMATION
  Report Type: Spontaneous
  Country: US (occurrence: US)
  Receive Date: 20240430
  Receipt Date: 20240430
  Transmission Date: 20240716
  Serious: Yes (Other)
  Sender: FDA-Public Use
  Company Number: US-BRISTOL-MYERS SQUIBB COMPANY-2024-065592

PATIENT
  Age: 88 Year
  Weight: 64.23 kg

DRUGS (15)
  1. LENALIDOMIDE [Suspect]
     Active Substance: LENALIDOMIDE
     Indication: Myelodysplastic syndrome
     Route: 048
     Dates: start: 20220310
  2. OMEPRAZOLE [Concomitant]
     Active Substance: OMEPRAZOLE
     Indication: Product used for unknown indication
     Dosage: 40
  3. LOVAZA [Concomitant]
     Active Substance: OMEGA-3-ACID ETHYL ESTERS
     Indication: Product used for unknown indication
     Dosage: 40
  4. LISINOPRIL [Concomitant]
     Active Substance: LISINOPRIL
     Indication: Product used for unknown indication
     Dosage: 20
  5. GLUCOSAMINE CHONDROINATO [Concomitant]
     Indication: Product used for unknown indication
     Dosage: 500 COMPLEX
  6. FIBERCON [Concomitant]
     Active Substance: CALCIUM POLYCARBOPHIL
     Indication: Product used for unknown indication
     Dosage: 625
  7. BIOTIN [Concomitant]
     Active Substance: BIOTIN
     Indication: Product used for unknown indication
     Dosage: 300
  8. CALCIUM\VITAMIN D [Concomitant]
     Active Substance: CALCIUM\VITAMIN D
     Indication: Product used for unknown indication
     Dosage: 300
  9. PROPRANOLOL [Concomitant]
     Active Substance: PROPRANOLOL HYDROCHLORIDE
     Indication: Product used for unknown indication
     Dosage: 10
  10. BIFIDOBACTERIUM ANIMALIS LACTIS [Concomitant]
     Active Substance: BIFIDOBACTERIUM ANIMALIS LACTIS
     Indication: Product used for unknown indication
     Dosage: DAILY
  11. METHENAMINE MANDELATE [Concomitant]
     Active Substance: METHENAMINE MANDELATE
     Indication: Product used for unknown indication
     Dosage: DAILY
  12. LACTASE [Concomitant]
     Active Substance: LACTASE
     Indication: Product used for unknown indication
     Dosage: 300
  13. CHOLESTYRAMINE LIGHT [Concomitant]
     Active Substance: CHOLESTYRAMINE
     Indication: Product used for unknown indication
  14. VIBERZI [Concomitant]
     Active Substance: ELUXADOLINE
     Indication: Product used for unknown indication
  15. PREDNISONE [Concomitant]
     Active Substance: PREDNISONE
     Indication: Product used for unknown indication

REACTIONS (2)
  - Pneumonia [Unknown]
  - Off label use [Unknown]
